FAERS Safety Report 6317055-X (Version None)
Quarter: 2009Q3

REPORT INFORMATION
  Report Type: 
  Country: None (occurrence: None)
  Receive Date: 20090820
  Receipt Date: 20090811
  Transmission Date: 20100115
  Serious: Yes (Other)
  Sender: FDA-Public Use
  Company Number: US-PFIZER INC-2009253792

PATIENT
  Sex: Male
  Weight: 77.098 kg

DRUGS (1)
  1. CELEBREX [Suspect]
     Indication: OSTEOARTHRITIS
     Dates: start: 20090501, end: 20090615

REACTIONS (2)
  - HEART RATE DECREASED [None]
  - MALAISE [None]
